FAERS Safety Report 5549309-9 (Version None)
Quarter: 2007Q4

REPORT INFORMATION
  Report Type: 
  Country: None (occurrence: None)
  Receive Date: 20071212
  Receipt Date: 20071130
  Transmission Date: 20080405
  Serious: Yes (Other)
  Sender: FDA-Public Use
  Company Number: HQWYE471227JUL04

PATIENT
  Sex: Female

DRUGS (3)
  1. PREMPRO [Suspect]
     Indication: HORMONE REPLACEMENT THERAPY
  2. CYCRIN [Suspect]
  3. PREMARIN [Suspect]

REACTIONS (15)
  - ABDOMINAL PAIN [None]
  - ALOPECIA [None]
  - BONE PAIN [None]
  - CARDIAC FAILURE CONGESTIVE [None]
  - CARDIAC VALVE DISEASE [None]
  - CARDIOMEGALY [None]
  - CHEST PAIN [None]
  - DIVERTICULITIS [None]
  - HYPERSENSITIVITY [None]
  - HYPERTENSION [None]
  - MYALGIA [None]
  - PALPITATIONS [None]
  - RENAL DISORDER [None]
  - THYROID DISORDER [None]
  - VISUAL DISTURBANCE [None]
